FAERS Safety Report 5820729-8 (Version None)
Quarter: 2008Q3

REPORT INFORMATION
  Report Type: 
  Country: None (occurrence: None)
  Receive Date: 20080724
  Receipt Date: 20080516
  Transmission Date: 20090109
  Serious: No
  Sender: FDA-Public Use
  Company Number: A0717874A

PATIENT
  Age: 64 Year
  Sex: Male

DRUGS (12)
  1. AVANDIA [Suspect]
     Route: 048
     Dates: start: 20060323, end: 20061201
  2. GLUCOVANCE [Concomitant]
     Dosage: 2TAB TWICE PER DAY
     Route: 048
  3. UNSPECIFIED MEDICATION [Concomitant]
  4. METOPROLOL SUCCINATE [Concomitant]
     Dosage: 25MG PER DAY
  5. PRAVASTATIN [Concomitant]
  6. FOSINOPRIL SODIUM [Concomitant]
     Dosage: 40MG PER DAY
  7. FUROSEMIDE [Concomitant]
     Dosage: 40MG PER DAY
  8. ASPIRIN [Concomitant]
  9. MULTI-VITAMIN [Concomitant]
  10. ASCORBIC ACID [Concomitant]
  11. VITAMIN E [Concomitant]
  12. LIPITOR [Concomitant]
     Dosage: 10MG PER DAY
     Route: 048

REACTIONS (6)
  - CHEST PAIN [None]
  - DYSPNOEA [None]
  - DYSPNOEA EXERTIONAL [None]
  - EAR PAIN [None]
  - OEDEMA [None]
  - TREATMENT NONCOMPLIANCE [None]
